FAERS Safety Report 7003378-8 (Version None)
Quarter: 2010Q3

REPORT INFORMATION
  Report Type: 
  Country: None (occurrence: None)
  Receive Date: 20100920
  Receipt Date: 20100908
  Transmission Date: 20110219
  Serious: Yes (Other)
  Sender: FDA-Public Use
  Company Number: US-PFIZER INC-2010113747

PATIENT
  Sex: Female

DRUGS (2)
  1. NEURONTIN [Suspect]
     Dosage: 300 MG, 1X/DAY
  2. NEURONTIN [Suspect]
     Dosage: 300 MG, 2X/DAY
     Route: 048

REACTIONS (2)
  - SOMNOLENCE [None]
  - VAGINAL HAEMORRHAGE [None]
